FAERS Safety Report 12980240 (Version 1)
Quarter: 2016Q4

REPORT INFORMATION
  Report Type: Spontaneous
  Country: NZ (occurrence: NZ)
  Receive Date: 20161128
  Receipt Date: 20161128
  Transmission Date: 20170207
  Serious: Yes (Hospitalization)
  Sender: FDA-Public Use
  Company Number: NZ-ELI_LILLY_AND_COMPANY-NZ201611007756

PATIENT
  Age: 68 Year
  Sex: Female

DRUGS (5)
  1. PARACETAMOL [Concomitant]
     Active Substance: ACETAMINOPHEN
     Indication: RIB FRACTURE
     Dosage: UNK
     Route: 048
     Dates: start: 20160220
  2. PROZAC [Suspect]
     Active Substance: FLUOXETINE HYDROCHLORIDE
     Indication: PRODUCT USED FOR UNKNOWN INDICATION
     Dosage: UNK, UNKNOWN
     Route: 048
     Dates: start: 20160220
  3. IBUPROFEN. [Concomitant]
     Active Substance: IBUPROFEN
     Indication: RIB FRACTURE
     Dosage: 1.2 G, QD
     Route: 048
     Dates: start: 20160220
  4. NORTRIPTYLINE [Concomitant]
     Active Substance: NORTRIPTYLINE
     Dosage: UNK
     Route: 048
     Dates: start: 20160220
  5. GABAPENTIN. [Concomitant]
     Active Substance: GABAPENTIN
     Dosage: UNK
     Dates: start: 20160220

REACTIONS (2)
  - Hepatitis cholestatic [Unknown]
  - Hepatic steatosis [Unknown]
